FAERS Safety Report 6591680-3 (Version None)
Quarter: 2010Q1

REPORT INFORMATION
  Report Type: 
  Country: None (occurrence: None)
  Receive Date: 20100221
  Receipt Date: 20090602
  Transmission Date: 20100710
  Serious: No
  Sender: FDA-Public Use
  Company Number: US-ALLERGAN-0907679US

PATIENT
  Age: 44 Year
  Sex: Female

DRUGS (2)
  1. BOTOX COSMETIC [Suspect]
     Indication: SKIN WRINKLING
     Dosage: 33 UNITS, SINGLE
     Route: 030
     Dates: start: 20090519, end: 20090519
  2. BOTOX COSMETIC [Suspect]
     Dosage: 11 UNITS, SINGLE
     Route: 030
     Dates: start: 20090526, end: 20090526

REACTIONS (1)
  - DRUG INEFFECTIVE [None]
